FAERS Safety Report 6148367-0 (Version None)
Quarter: 2009Q2

REPORT INFORMATION
  Report Type: 
  Country: None (occurrence: None)
  Receive Date: 20090408
  Receipt Date: 20090401
  Transmission Date: 20091009
  Serious: Yes (Other)
  Sender: FDA-Public Use
  Company Number: US-JNJFOC-20090400706

PATIENT
  Sex: Male
  Weight: 102.06 kg

DRUGS (5)
  1. FENTANYL TRANSDERMAL SYSTEM [Suspect]
     Indication: BACK PAIN
     Route: 062
  2. MORPHINE [Concomitant]
     Indication: PAIN
     Route: 048
  3. METHOCARBAMAL [Concomitant]
     Indication: MUSCLE RELAXANT THERAPY
     Dosage: 1000 MG TABLET 500MG/2. FOUR TIMES A DAY
     Route: 048
  4. VERAPAMIL [Concomitant]
     Indication: CARDIAC DISORDER
     Dosage: 120 MG EVERY MORNING AND EVERY EVENING
     Route: 048
  5. GABAPENTIN [Concomitant]
     Indication: NEUROPATHY PERIPHERAL
     Route: 048

REACTIONS (2)
  - AORTIC ANEURYSM [None]
  - TREATMENT NONCOMPLIANCE [None]
